APPROVED DRUG PRODUCT: INDIUM IN 111 OXYQUINOLINE
Active Ingredient: INDIUM IN-111 OXYQUINOLINE
Strength: 1mCi/ML
Dosage Form/Route: INJECTABLE;INJECTION
Application: N019044 | Product #001 | TE Code: AP
Applicant: GE HEALTHCARE
Approved: Dec 24, 1985 | RLD: Yes | RS: Yes | Type: RX